FAERS Safety Report 4403722-1 (Version None)
Quarter: 2004Q3

REPORT INFORMATION
  Report Type: 
  Country: None (occurrence: None)
  Receive Date: 20040719
  Receipt Date: 20040714
  Transmission Date: 20050211
  Serious: Yes (Hospitalization)
  Sender: FDA-Public Use
  Company Number: TCI2004A02686

PATIENT
  Age: 11 Year
  Sex: Female

DRUGS (21)
  1. LEUPROLIDE ACETATE [Suspect]
     Indication: PRECOCIOUS PUBERTY
     Dosage: 1.88 MG (1.88 MG, 1 IN 28 D) SUBCUTANEOUS; SEE IMAGE
     Route: 058
     Dates: start: 20040203, end: 20040101
  2. LEUPROLIDE ACETATE [Suspect]
     Indication: PRECOCIOUS PUBERTY
     Dosage: 1.88 MG (1.88 MG, 1 IN 28 D) SUBCUTANEOUS; SEE IMAGE
     Route: 058
     Dates: start: 20030916
  3. LEUPROLIDE ACETATE [Suspect]
     Indication: PRECOCIOUS PUBERTY
     Dosage: 1.88 MG (1.88 MG, 1 IN 28 D) SUBCUTANEOUS; SEE IMAGE
     Route: 058
     Dates: start: 20040330
  4. CROMOGLICATE SODIUM (AEROSOL FOR INHALATION) [Concomitant]
  5. HEPARINOID (LOTION (NOT FOR OPHTHALMIC USE)) [Concomitant]
  6. CETIRIZINE HYDROCHLORIDE (TABLETS) [Concomitant]
  7. TERBUTALINE SULFATE (TABLETS) [Concomitant]
  8. CARBOCISTEINE (TABLETS) [Concomitant]
  9. MONTELUKAST SODIUM (CHEWABLE TABLET) [Concomitant]
  10. AMBROXOL HYDROCHLORIDE (TABLETS) [Concomitant]
  11. CROMOGLICATE SODIUM (EYE DROPS) [Concomitant]
  12. CROTAMITON (OINTMENT) [Concomitant]
  13. FUSIDATE SODIUM (OINTMENT) [Concomitant]
  14. FLAVINE ADENINE DINUCLEOTIDE (OPHTHALMIC OINTMENT/CREAM) [Concomitant]
  15. TOCOPHERYL NICOTINATE (OINTMENT) [Concomitant]
  16. NEO-MEDROL EYE-EAR (OINTMENT) [Concomitant]
  17. KETOTIFEN FUMARATE (CAPSULES) [Concomitant]
  18. VALISONE-G (LOTION (NOT FOR OPHTHALMIC USE)) [Concomitant]
  19. HYDROXYZINE HYDROCHLORIDE (TABLETS) [Concomitant]
  20. CROMOGLICATE SODIUM (INHALANT) [Concomitant]
  21. GLYCYRON (TABLETS) [Concomitant]

REACTIONS (3)
  - HAEMORRHAGE SUBCUTANEOUS [None]
  - IDIOPATHIC THROMBOCYTOPENIC PURPURA [None]
  - PYREXIA [None]
